FAERS Safety Report 12514356 (Version 6)
Quarter: 2017Q1

REPORT INFORMATION
  Report Type: Spontaneous
  Country: US (occurrence: US)
  Receive Date: 20160630
  Receipt Date: 20170123
  Transmission Date: 20170428
  Serious: Yes (Death, Hospitalization)
  Sender: FDA-Public Use
  Company Number: US-JNJFOC-20160528065

PATIENT
  Age: 75 Year
  Sex: Female

DRUGS (3)
  1. XARELTO [Suspect]
     Active Substance: RIVAROXABAN
     Indication: ATRIAL FIBRILLATION
     Dosage: 20 MG THEN REDUCED TO 15 MG
     Route: 048
     Dates: start: 20150101, end: 20150420
  2. XARELTO [Suspect]
     Active Substance: RIVAROXABAN
     Indication: THROMBOSIS PROPHYLAXIS
     Dosage: 20 MG THEN REDUCED TO 15 MG
     Route: 048
     Dates: start: 20150101, end: 20150420
  3. XARELTO [Suspect]
     Active Substance: RIVAROXABAN
     Indication: CEREBROVASCULAR ACCIDENT PROPHYLAXIS
     Dosage: 20 MG THEN REDUCED TO 15 MG
     Route: 048
     Dates: start: 20150101, end: 20150420

REACTIONS (4)
  - Systemic inflammatory response syndrome [Fatal]
  - Acute kidney injury [Fatal]
  - Gastrointestinal haemorrhage [Unknown]
  - Muscle haemorrhage [Unknown]

NARRATIVE: CASE EVENT DATE: 201504
